FAERS Safety Report 8489280-3 (Version None)
Quarter: 2012Q3

REPORT INFORMATION
  Report Type: 
  Country: None (occurrence: None)
  Receive Date: 20120705
  Receipt Date: 20120626
  Transmission Date: 20120928
  Serious: Yes (Other)
  Sender: FDA-Public Use
  Company Number: JP-VERTEX PHARMACEUTICALS INC.-AE-2012-007736

PATIENT
  Age: 48 Year
  Sex: Male

DRUGS (24)
  1. PEGINTERFERON ALFA-2B [Concomitant]
     Route: 058
  2. BASEN OD [Concomitant]
     Route: 048
  3. MUCODYNE [Concomitant]
     Route: 048
  4. ALLOPURINOL [Concomitant]
     Route: 048
  5. SYMBICORT [Concomitant]
     Route: 048
     Dates: start: 20120302
  6. URSO 250 [Concomitant]
     Route: 048
     Dates: end: 20120517
  7. MIGLITOL [Concomitant]
     Route: 048
  8. HIRUDOID SOFT OINTMENT [Concomitant]
     Route: 061
  9. HIRUDOID LOTION [Concomitant]
     Route: 061
  10. MONTELUKAST SODIUM [Concomitant]
     Route: 048
     Dates: start: 20120302
  11. TELAVIC (TELAPREVIR) [Suspect]
     Indication: HEPATITIS C
     Route: 048
     Dates: start: 20120218, end: 20120220
  12. ACTOS [Concomitant]
     Route: 048
  13. RESPLEN [Concomitant]
     Route: 048
     Dates: start: 20120424
  14. TELAVIC (TELAPREVIR) [Suspect]
     Route: 048
     Dates: start: 20120221, end: 20120509
  15. FEBURIC [Concomitant]
     Route: 048
  16. ANTEBATE: OINTMENT [Concomitant]
     Route: 061
  17. PEGINTERFERON ALFA-2B [Concomitant]
     Indication: HEPATITIS C
     Route: 058
     Dates: start: 20120218
  18. TALION [Concomitant]
     Route: 048
     Dates: start: 20120409
  19. METFORMIN HCL [Concomitant]
     Route: 048
     Dates: start: 20120420
  20. THEOLONG [Concomitant]
     Route: 048
     Dates: start: 20120424
  21. RIBAVIRIN [Concomitant]
     Indication: HEPATITIS C
     Route: 048
     Dates: start: 20120218
  22. LEVOFLOXACIN [Concomitant]
     Route: 048
     Dates: start: 20120426, end: 20120502
  23. GASMOTIN [Concomitant]
     Route: 048
  24. SYMBICORT [Concomitant]

REACTIONS (1)
  - RENAL IMPAIRMENT [None]
